FAERS Safety Report 6217832-X (Version None)
Quarter: 2009Q2

REPORT INFORMATION
  Report Type: 
  Country: None (occurrence: None)
  Receive Date: 20090608
  Receipt Date: 20090529
  Transmission Date: 20091009
  Serious: Yes (Other)
  Sender: FDA-Public Use
  Company Number: CA-ALLERGAN-0907718US

PATIENT
  Age: 40 Year
  Sex: Female

DRUGS (2)
  1. BOTOX [Suspect]
     Indication: EYE PAIN
     Dosage: 1 UNITS, SINGLE
     Route: 050
     Dates: start: 20080901, end: 20080901
  2. LOCAL ANESTHETICS [Concomitant]
     Dosage: UNK, SINGLE
     Dates: start: 20080901, end: 20080901

REACTIONS (2)
  - FACIAL PALSY [None]
  - FACIAL PARESIS [None]
